FAERS Safety Report 7558593-1 (Version None)
Quarter: 2011Q2

REPORT INFORMATION
  Report Type: 
  Country: None (occurrence: None)
  Receive Date: 20110621
  Receipt Date: 20110613
  Transmission Date: 20111010
  Serious: Yes (Death, Hospitalization)
  Sender: FDA-Public Use
  Company Number: US-BIOGENIDEC-2010BI032805

PATIENT
  Age: 52 Year
  Sex: Male

DRUGS (2)
  1. AVONEX [Suspect]
     Indication: MULTIPLE SCLEROSIS
     Route: 030
     Dates: start: 20090101, end: 20100901
  2. COUMADIN [Concomitant]
     Route: 048

REACTIONS (4)
  - HELICOBACTER TEST POSITIVE [None]
  - SEPTIC SHOCK [None]
  - RESPIRATORY DISTRESS [None]
  - GASTRIC ULCER PERFORATION [None]
